FAERS Safety Report 4681638-3 (Version None)
Quarter: 2005Q2

REPORT INFORMATION
  Report Type: 
  Country: None (occurrence: None)
  Receive Date: 20050602
  Receipt Date: 20050524
  Transmission Date: 20051028
  Serious: Yes (Hospitalization)
  Sender: FDA-Public Use
  Company Number: SUS1-2005-00429

PATIENT
  Age: 9 Year
  Sex: Male
  Weight: 38.5 kg

DRUGS (1)
  1. ADDERALL 10 [Suspect]
     Indication: ATTENTION DEFICIT/HYPERACTIVITY DISORDER
     Dosage: 1X/DAY; QD,
     Dates: start: 20000901, end: 20010301

REACTIONS (4)
  - BACTERIAL INFECTION [None]
  - PYREXIA [None]
  - RASH GENERALISED [None]
  - SKIN EXFOLIATION [None]
